FAERS Safety Report 20878312 (Version 1)
Quarter: 2022Q2

REPORT INFORMATION
  Report Type: Spontaneous
  Country: US (occurrence: US)
  Receive Date: 20220526
  Receipt Date: 20220526
  Transmission Date: 20220721
  Serious: No
  Sender: FDA-Public Use
  Company Number: US-GALDERMA-US2021014019

PATIENT

DRUGS (1)
  1. DIFFERIN GEL [Suspect]
     Active Substance: ADAPALENE
     Indication: Acne cystic
     Dosage: 1 DOSAGE FORM
     Route: 061

REACTIONS (6)
  - Skin texture abnormal [Recovering/Resolving]
  - Acne cystic [Recovering/Resolving]
  - Condition aggravated [Recovering/Resolving]
  - Dermatitis [Unknown]
  - Erythema [Unknown]
  - Product use in unapproved indication [Recovered/Resolved]
